FAERS Safety Report 4437813-6 (Version None)
Quarter: 2004Q3

REPORT INFORMATION
  Report Type: 
  Country: None (occurrence: None)
  Receive Date: 20040728
  Receipt Date: 20040621
  Transmission Date: 20050211
  Serious: No
  Sender: FDA-Public Use
  Company Number: USA040361096

PATIENT
  Age: 12 Year
  Sex: Male
  Weight: 32 kg

DRUGS (4)
  1. STRATTERA [Suspect]
     Indication: ATTENTION DEFICIT/HYPERACTIVITY DISORDER
     Dosage: 40 MG IN THE MORNING
     Dates: start: 20030901
  2. FLUORIDE [Concomitant]
  3. CLARITIN [Concomitant]
  4. SINGULAIR [Concomitant]

REACTIONS (6)
  - DRUG INEFFECTIVE [None]
  - FATIGUE [None]
  - HEADACHE [None]
  - LETHARGY [None]
  - SOMNOLENCE [None]
  - WEIGHT INCREASED [None]
